FAERS Safety Report 17631583 (Version 13)
Quarter: 2022Q3

REPORT INFORMATION
  Report Type: Report from Study
  Country: JP (occurrence: JP)
  Receive Date: 20200406
  Receipt Date: 20220829
  Transmission Date: 20221027
  Serious: Yes (Hospitalization, Other)
  Sender: FDA-Public Use
  Company Number: JP-ONO-2020JP008302

PATIENT
  Age: 52 Year
  Sex: Male
  Weight: 103.5 kg

DRUGS (25)
  1. ETELCALCETIDE [Suspect]
     Active Substance: ETELCALCETIDE
     Indication: Hyperparathyroidism secondary
     Dosage: 10 MILLIGRAM, Q56H
     Route: 010
     Dates: start: 20191130, end: 20191218
  2. ETELCALCETIDE [Suspect]
     Active Substance: ETELCALCETIDE
     Dosage: 12.5 MILLIGRAM, Q56H
     Route: 010
     Dates: start: 20191220, end: 20200114
  3. ETELCALCETIDE [Suspect]
     Active Substance: ETELCALCETIDE
     Dosage: 15 MILLIGRAM, Q56H
     Route: 010
     Dates: start: 20200116, end: 20200204
  4. ETELCALCETIDE [Suspect]
     Active Substance: ETELCALCETIDE
     Dosage: 2.5 MILLIGRAM, Q56H
     Route: 010
     Dates: start: 20201024, end: 20201119
  5. ETELCALCETIDE [Suspect]
     Active Substance: ETELCALCETIDE
     Dosage: 5 MILLIGRAM, Q56H
     Route: 010
     Dates: start: 20201121
  6. OXAROL [Concomitant]
     Active Substance: MAXACALCITOL
     Dosage: 5 MICROGRAM, Q56H
     Route: 065
     Dates: end: 20200118
  7. OXAROL [Concomitant]
     Active Substance: MAXACALCITOL
     Dosage: 2.5 MICROGRAM, Q56H
     Route: 065
     Dates: start: 20201110
  8. ALFAROL [Concomitant]
     Active Substance: ALFACALCIDOL
     Dosage: 0.5 MICROGRAM, Q56H
     Route: 048
     Dates: end: 20191117
  9. ALFAROL [Concomitant]
     Active Substance: ALFACALCIDOL
     Dosage: 0.5 MICROGRAM, Q84H
     Route: 048
     Dates: start: 20200716, end: 20201022
  10. ALFAROL [Concomitant]
     Active Substance: ALFACALCIDOL
     Dosage: 2.0 MICROGRAM, Q56H
     Route: 048
     Dates: start: 20201024, end: 20210419
  11. ALFAROL [Concomitant]
     Active Substance: ALFACALCIDOL
     Dosage: 1.5 MICROGRAM, Q56H
     Route: 048
     Dates: start: 20210421
  12. EVOCALCET [Concomitant]
     Active Substance: EVOCALCET
     Dosage: 1.0 MILLIGRAM, Q56H
     Route: 048
     Dates: start: 20180809, end: 20180811
  13. EVOCALCET [Concomitant]
     Active Substance: EVOCALCET
     Dosage: 2.0 MILLIGRAM, Q56H
     Route: 048
     Dates: start: 20180814, end: 20180903
  14. EVOCALCET [Concomitant]
     Active Substance: EVOCALCET
     Dosage: 2 MILLIGRAM, QD
     Route: 048
     Dates: start: 20180906, end: 20181015
  15. EVOCALCET [Concomitant]
     Active Substance: EVOCALCET
     Dosage: 3 MILLIGRAM, QD
     Route: 048
     Dates: start: 20181016, end: 20190111
  16. EVOCALCET [Concomitant]
     Active Substance: EVOCALCET
     Dosage: 4 MILLIGRAM, QD
     Route: 048
     Dates: start: 20190112, end: 20190405
  17. EVOCALCET [Concomitant]
     Active Substance: EVOCALCET
     Dosage: 5 MILLIGRAM, QD
     Route: 048
     Dates: start: 20190406, end: 20190510
  18. EVOCALCET [Concomitant]
     Active Substance: EVOCALCET
     Dosage: 6 MILLIGRAM, QD
     Route: 048
     Dates: start: 20190511, end: 20190621
  19. EVOCALCET [Concomitant]
     Active Substance: EVOCALCET
     Dosage: 9 MILLIGRAM, QD
     Route: 048
     Dates: start: 20190622, end: 20190826
  20. EVOCALCET [Concomitant]
     Active Substance: EVOCALCET
     Dosage: 10 MILLIGRAM, QD
     Route: 048
     Dates: start: 20190827, end: 20191127
  21. EVOCALCET [Concomitant]
     Active Substance: EVOCALCET
     Dosage: 1 MILLIGRAM, Q56H
     Route: 048
     Dates: start: 20200215, end: 20201022
  22. CALCIUM CARBONATE [Concomitant]
     Active Substance: CALCIUM CARBONATE
     Dosage: 1500 MILLIGRAM, QD
     Route: 048
  23. LANTHANUM CARBONATE [Concomitant]
     Active Substance: LANTHANUM CARBONATE
     Dosage: 1000 MG, EVERYDAY
     Route: 048
  24. INSULIN NOS [Concomitant]
     Active Substance: INSULIN NOS
     Dosage: UNK
     Route: 065
  25. FERRIC CITRATE ANHYDROUS [Concomitant]
     Active Substance: FERRIC CITRATE ANHYDROUS
     Dosage: 1500 MILLIGRAM, QD
     Route: 048
     Dates: start: 20181107

REACTIONS (4)
  - Cataract [Recovered/Resolved]
  - Tendon rupture [Recovered/Resolved]
  - Peripheral arterial occlusive disease [Recovered/Resolved]
  - Hyperparathyroidism secondary [Recovering/Resolving]

NARRATIVE: CASE EVENT DATE: 20200121
